FAERS Safety Report 18045787 (Version 1)
Quarter: 2020Q3

REPORT INFORMATION
  Report Type: Report from Study
  Country: US (occurrence: US)
  Receive Date: 20200720
  Receipt Date: 20200720
  Transmission Date: 20201103
  Serious: Yes (Hospitalization)
  Sender: FDA-Public Use
  Company Number: US-EISAI MEDICAL RESEARCH-EC-2020-077482

PATIENT
  Age: 57 Year
  Sex: Male
  Weight: 77.1 kg

DRUGS (1)
  1. LENVIMA [Suspect]
     Active Substance: LENVATINIB
     Indication: HEPATOCELLULAR CARCINOMA
     Route: 048
     Dates: start: 20200612, end: 202007

REACTIONS (3)
  - Abdominal discomfort [Unknown]
  - Ammonia increased [Unknown]
  - Disorientation [Unknown]

NARRATIVE: CASE EVENT DATE: 202007
